FAERS Safety Report 24167466 (Version 1)
Quarter: 2024Q3

REPORT INFORMATION
  Report Type: Spontaneous
  Country: FR (occurrence: FR)
  Receive Date: 20240802
  Receipt Date: 20240802
  Transmission Date: 20241016
  Serious: Yes (Life-Threatening, Hospitalization, Other)
  Sender: BRACCO
  Company Number: FR-BRACCO-2024FR04629

PATIENT
  Sex: Male

DRUGS (3)
  1. SULFUR HEXAFLUORIDE [Suspect]
     Active Substance: SULFUR HEXAFLUORIDE
     Indication: Imaging procedure
     Dosage: 1 ML, SINGLE
     Dates: start: 20240724, end: 20240724
  2. SULFUR HEXAFLUORIDE [Suspect]
     Active Substance: SULFUR HEXAFLUORIDE
     Indication: Imaging procedure
     Dosage: 1 ML, SINGLE
     Dates: start: 20240724, end: 20240724
  3. SULFUR HEXAFLUORIDE [Suspect]
     Active Substance: SULFUR HEXAFLUORIDE
     Indication: Imaging procedure
     Dosage: 1 ML, SINGLE
     Dates: start: 20240724, end: 20240724

REACTIONS (6)
  - Bradycardia [Unknown]
  - Dyspnoea [Unknown]
  - Cardiac arrest [Unknown]
  - Ventricular tachycardia [Unknown]
  - Cardiogenic shock [Unknown]
  - Feeling hot [Unknown]

NARRATIVE: CASE EVENT DATE: 20240724
